FAERS Safety Report 8661577 (Version 2)
Quarter: 2013Q1

REPORT INFORMATION
  Report Type: Spontaneous
  Country: JP (occurrence: None)
  Receive Date: 20120626
  Receipt Date: 20121017
  Transmission Date: 20140127
  Serious: Yes (Hospitalization)
  Sender: FDA-Public Use
  Company Number: TCI2009A04543

PATIENT
  Age: 72 Year
  Sex: Male

DRUGS (4)
  1. ACTOS [Suspect]
     Indication: TYPE 2 DIABETES MELLITUS
     Dosage: 15 MG (15 MG, 1 D)
     Route: 048
     Dates: start: 20081027
  2. BASEN OD (VOGLIBOSE) [Concomitant]
  3. INSULINS AND ANALOGUES,FAST-ACTING [Concomitant]
  4. LIPITOR (ATORVASTATIN CALCIUM) [Concomitant]

REACTIONS (3)
  - Lung neoplasm malignant [None]
  - Spinal osteoarthritis [None]
  - Upper respiratory tract inflammation [None]
